FAERS Safety Report 19175222 (Version 1)
Quarter: 2021Q2

REPORT INFORMATION
  Report Type: Spontaneous
  Country: US (occurrence: US)
  Receive Date: 20210423
  Receipt Date: 20210423
  Transmission Date: 20210717
  Serious: Yes (Hospitalization)
  Sender: FDA-Public Use
  Company Number: US-VERTEX PHARMACEUTICALS-2021-001309

PATIENT
  Age: 52 Year
  Sex: Female
  Weight: 43 kg

DRUGS (24)
  1. VENTOLIN HFA [Concomitant]
     Active Substance: ALBUTEROL SULFATE
     Dosage: 90 MICROGRAM
  2. NACL [Concomitant]
     Active Substance: SODIUM CHLORIDE
     Dosage: 0.9%
  3. LORAZEPAM. [Concomitant]
     Active Substance: LORAZEPAM
     Dosage: 0.5 MILLIGRAM TABLET
     Route: 048
  4. ACETYLCYSTEINE. [Concomitant]
     Active Substance: ACETYLCYSTEINE
     Dosage: 100 MG/ML VIAL
  5. COMBIVENT RESPIMAT [Concomitant]
     Active Substance: ALBUTEROL SULFATE\IPRATROPIUM BROMIDE
  6. HYPERSAL [Concomitant]
     Active Substance: SODIUM CHLORIDE
     Dosage: 7% VIAL
  7. CALCIUM [Concomitant]
     Active Substance: CALCIUM
     Dosage: 600 MILLIGRAM TABLET
     Route: 048
  8. VITAMIN D3 [Concomitant]
     Active Substance: CHOLECALCIFEROL
     Dosage: 50 MICROGRAM TABLET
     Route: 048
  9. PREDNISONE. [Concomitant]
     Active Substance: PREDNISONE
     Dosage: 10 MILLIGRAM TABLET
     Route: 048
  10. TOBRAMYCIN. [Concomitant]
     Active Substance: TOBRAMYCIN
     Dosage: 300MG/ 5ML AMPULE
  11. URSODIOL. [Concomitant]
     Active Substance: URSODIOL
     Dosage: 250 MILLIGRAM TABLET
     Route: 048
  12. ALPRAZOLAM. [Concomitant]
     Active Substance: ALPRAZOLAM
     Dosage: 0.25 MILLIGRAM TABLET
     Route: 048
  13. BUDESONIDE. [Concomitant]
     Active Substance: BUDESONIDE
     Dosage: 0.25MG/ 2ML AMPULE
  14. IPRATROPIUM/ALBUTEROL [Concomitant]
     Active Substance: ALBUTEROL\IPRATROPIUM
  15. AZITHROMYCIN ANHYDROUS. [Concomitant]
     Active Substance: AZITHROMYCIN ANHYDROUS
     Dosage: 250 MILLIGRAM TABLET
     Route: 048
  16. TRIKAFTA [Suspect]
     Active Substance: ELEXACAFTOR\IVACAFTOR\TEZACAFTOR
     Indication: CYSTIC FIBROSIS
     Dosage: 2 TABS (100 MG ELEXACAFTOR/ 50 MG TEZACAFTOR/ 75 MG IVACAFTOR) AM; 1 TAB (150MG IVACAFTOR) PM
     Route: 048
     Dates: start: 20200215
  17. CREON [Concomitant]
     Active Substance: PANCRELIPASE AMYLASE\PANCRELIPASE LIPASE\PANCRELIPASE PROTEASE
     Dosage: 12K?38K?60 CAPSULE DR
     Route: 048
  18. TOBI [Concomitant]
     Active Substance: TOBRAMYCIN
  19. MAGNESIUM [Concomitant]
     Active Substance: MAGNESIUM
     Dosage: 250 MILLIGRAM TABLET
     Route: 048
  20. ZYRTEC [Concomitant]
     Active Substance: CETIRIZINE HYDROCHLORIDE
     Dosage: 10 MILLIGRAM
     Route: 048
  21. PULMOZYME [Concomitant]
     Active Substance: DORNASE ALFA
  22. CAYSTON [Concomitant]
     Active Substance: AZTREONAM
     Dosage: 75MG/ ML VIAL
  23. CYCLOBENZAPRINE HCL [Concomitant]
     Active Substance: CYCLOBENZAPRINE HYDROCHLORIDE
     Dosage: 10 MILLIGRAM TABLET
     Route: 048
  24. MEROPENEM. [Concomitant]
     Active Substance: MEROPENEM

REACTIONS (2)
  - Hip fracture [Unknown]
  - Heart rate increased [Unknown]

NARRATIVE: CASE EVENT DATE: 202102
